FAERS Safety Report 8095445-5 (Version None)
Quarter: 2012Q1

REPORT INFORMATION
  Report Type: 
  Country: None (occurrence: None)
  Receive Date: 20120129
  Receipt Date: 20111215
  Transmission Date: 20120608
  Serious: No
  Sender: FDA-Public Use
  Company Number: US-ABBOTT-11P-163-0884224-00

PATIENT
  Age: 60 Year
  Sex: Female

DRUGS (11)
  1. SERTRALINE HYDROCHLORIDE [Concomitant]
     Indication: ANXIETY
  2. METHOTREXATE [Concomitant]
     Indication: PRODUCT USED FOR UNKNOWN INDICATION
  3. TRAMADOL HCL [Concomitant]
     Indication: PAIN
  4. CALCIPOTRIENE [Concomitant]
     Indication: PSORIASIS
     Dosage: APPLIES ON LEGS/ARMS
  5. SERTRALINE HYDROCHLORIDE [Concomitant]
     Indication: DEPRESSION
  6. CRESTOR [Concomitant]
     Indication: BLOOD CHOLESTEROL
  7. UNKNOWN CREAM [Concomitant]
     Indication: PSORIASIS
  8. LEVOTHYROXINE SODIUM [Concomitant]
     Indication: THYROID DISORDER
  9. OMEPRAZOLE [Concomitant]
     Indication: GASTROOESOPHAGEAL REFLUX DISEASE
  10. FOLIC ACID [Concomitant]
     Indication: ILL-DEFINED DISORDER
  11. HUMIRA [Suspect]
     Indication: RHEUMATOID ARTHRITIS
     Dates: start: 20111130

REACTIONS (4)
  - HYPERSENSITIVITY [None]
  - ABDOMINAL PAIN UPPER [None]
  - ILL-DEFINED DISORDER [None]
  - FLATULENCE [None]
